FAERS Safety Report 20321041 (Version 2)
Quarter: 2022Q1

REPORT INFORMATION
  Report Type: Spontaneous
  Country: DE (occurrence: None)
  Receive Date: 20220111
  Receipt Date: 20220216
  Transmission Date: 20220423
  Serious: Yes (Death)
  Sender: FDA-Public Use
  Company Number: DE-ROCHE-2997824

PATIENT

DRUGS (1)
  1. POLIVY [Suspect]
     Active Substance: POLATUZUMAB VEDOTIN-PIIQ
     Indication: Product used for unknown indication
     Route: 065

REACTIONS (1)
  - Death [Fatal]
